FAERS Safety Report 21499276 (Version 1)
Quarter: 2022Q4

REPORT INFORMATION
  Report Type: Spontaneous
  Country: US (occurrence: None)
  Receive Date: 20221023
  Receipt Date: 20221023
  Transmission Date: 20230113
  Serious: Yes (Other)
  Sender: FDA-Public Use
  Company Number: None

PATIENT
  Age: 33 Year
  Sex: Male
  Weight: 72 kg

DRUGS (2)
  1. TERBINAFINE HYDROCHLORIDE [Suspect]
     Active Substance: TERBINAFINE HYDROCHLORIDE
     Indication: Tinea pedis
     Dates: start: 20221016, end: 20221019
  2. Generic cvs vitamins [Concomitant]

REACTIONS (3)
  - Pyrexia [None]
  - Oropharyngeal pain [None]
  - Blister [None]

NARRATIVE: CASE EVENT DATE: 20221017
